FAERS Safety Report 6984751-0 (Version None)
Quarter: 2010Q3

REPORT INFORMATION
  Report Type: 
  Country: None (occurrence: None)
  Receive Date: 20100913
  Receipt Date: 20100828
  Transmission Date: 20110219
  Serious: Yes (Hospitalization)
  Sender: FDA-Public Use
  Company Number: AUR-APL-2010-02199

PATIENT
  Age: 55 Year
  Sex: Male
  Weight: 98.5 kg

DRUGS (7)
  1. HYDROCHLOROTHIAZIDE [Suspect]
     Dosage: 25MG, DAILY
  2. LISINOPRIL [Suspect]
     Dosage: 10MG, DAILY
  3. SUNITINIB MALATE [Suspect]
     Indication: RENAL CELL CARCINOMA
     Dosage: ORAL
     Route: 048
     Dates: start: 20090708
  4. ACETYLSALICYLIC ACID [Suspect]
     Dosage: 81MG, DAILY
  5. PLAVIX [Suspect]
     Dosage: 75MG, DAILY
  6. TOPROL-XL [Suspect]
     Dosage: 225MG, DAILY
  7. TRAZODONE HCL [Concomitant]

REACTIONS (7)
  - EPISTAXIS [None]
  - FAECAL INCONTINENCE [None]
  - HYPERTENSION [None]
  - MUCOSAL DRYNESS [None]
  - PULMONARY HAEMORRHAGE [None]
  - SYNCOPE [None]
  - URINARY INCONTINENCE [None]
